FAERS Safety Report 25093577 (Version 2)
Quarter: 2025Q2

REPORT INFORMATION
  Report Type: Report from Study
  Country: CA (occurrence: CA)
  Receive Date: 20250319
  Receipt Date: 20250416
  Transmission Date: 20250717
  Serious: No
  Sender: CSL BEHRING
  Company Number: CA-BEH-2025199194

PATIENT
  Sex: Male

DRUGS (1)
  1. VELTASSA [Suspect]
     Active Substance: PATIROMER
     Indication: Blood potassium abnormal
     Dosage: 8.4 G (EVERY SUNDAY AFTERNOON)
     Route: 048

REACTIONS (8)
  - Coma [Fatal]
  - Pneumonia [Fatal]
  - Chronic obstructive pulmonary disease [Fatal]
  - Cardiac failure [Fatal]
  - Renal disorder [Fatal]
  - COVID-19 [Fatal]
  - Sepsis [Fatal]
  - Off label use [Unknown]
